FAERS Safety Report 14422930 (Version 1)
Quarter: 2018Q1

REPORT INFORMATION
  Report Type: Spontaneous
  Country: US (occurrence: US)
  Receive Date: 20180123
  Receipt Date: 20180123
  Transmission Date: 20180509
  Serious: No
  Sender: FDA-Public Use
  Company Number: US-SUN PHARMACEUTICAL INDUSTRIES LTD-2017US-156686

PATIENT
  Sex: Male

DRUGS (1)
  1. LOPERAMIDE [Suspect]
     Active Substance: LOPERAMIDE
     Indication: DIARRHOEA
     Dosage: 2 CAPLETS YESTERDAY AT 5:00 PM, ANOTHER CAPLET AT 10:00 PM, AROUND 3:30 AM TOOK 4TH CAPLET, TOOK MOR
     Route: 065
     Dates: start: 201611

REACTIONS (2)
  - Wrong dose [Unknown]
  - Expired product administered [Unknown]

NARRATIVE: CASE EVENT DATE: 201711
